FAERS Safety Report 24255014 (Version 5)
Quarter: 2024Q4

REPORT INFORMATION
  Report Type: Spontaneous
  Country: US (occurrence: US)
  Receive Date: 20240827
  Receipt Date: 20241118
  Transmission Date: 20250115
  Serious: No
  Sender: PFIZER
  Company Number: US-PFIZER INC-PV202400111390

PATIENT
  Age: 67 Year
  Sex: Female

DRUGS (3)
  1. IBRANCE [Suspect]
     Active Substance: PALBOCICLIB
     Dosage: 125 MG
     Dates: start: 2024, end: 2024
  2. IBRANCE [Suspect]
     Active Substance: PALBOCICLIB
     Dosage: 100 MG
     Dates: start: 2024, end: 2024
  3. IBRANCE [Suspect]
     Active Substance: PALBOCICLIB
     Dosage: 75 MG
     Dates: start: 2024

REACTIONS (10)
  - Neutrophil count decreased [Unknown]
  - Diarrhoea [Not Recovered/Not Resolved]
  - Alopecia [Not Recovered/Not Resolved]
  - Oral disorder [Unknown]
  - Fatigue [Not Recovered/Not Resolved]
  - Stomatitis [Unknown]
  - Cystitis [Unknown]
  - Dry skin [Not Recovered/Not Resolved]
  - Nasal herpes [Not Recovered/Not Resolved]
  - Oral herpes [Not Recovered/Not Resolved]

NARRATIVE: CASE EVENT DATE: 20240101
